FAERS Safety Report 26062179 (Version 3)
Quarter: 2025Q4

REPORT INFORMATION
  Report Type: Spontaneous
  Country: US (occurrence: US)
  Receive Date: 20251119
  Receipt Date: 20251128
  Transmission Date: 20260118
  Serious: Yes (Other)
  Sender: TOLMAR
  Company Number: US-Tolmar-TLM-2025-08669

PATIENT
  Sex: Male

DRUGS (3)
  1. FENSOLVI [Suspect]
     Active Substance: LEUPROLIDE ACETATE
     Indication: Product used for unknown indication
  2. FENSOLVI [Suspect]
     Active Substance: LEUPROLIDE ACETATE
  3. DEVICE [Suspect]
     Active Substance: DEVICE
     Indication: Product used for unknown indication

REACTIONS (2)
  - Intracranial pressure increased [Unknown]
  - Headache [Unknown]
